FAERS Safety Report 22325807 (Version 1)
Quarter: 2023Q2

REPORT INFORMATION
  Report Type: Spontaneous
  Country: US (occurrence: US)
  Receive Date: 20230516
  Receipt Date: 20230516
  Transmission Date: 20230722
  Serious: No
  Sender: FDA-Public Use
  Company Number: US-ANIPHARMA-2023-US-009975

PATIENT
  Age: 53 Year
  Sex: Male

DRUGS (12)
  1. CORTICOTROPIN [Suspect]
     Active Substance: CORTICOTROPIN
     Indication: Nephrotic syndrome
     Dosage: 80 UNITS/ML
     Route: 058
     Dates: start: 20230209
  2. RITONAVIR [Concomitant]
     Active Substance: RITONAVIR
     Route: 065
  3. Sodium Bicar [Concomitant]
     Route: 065
  4. SYNTHROID [Concomitant]
     Active Substance: LEVOTHYROXINE SODIUM
     Route: 065
  5. CARVEDILOL [Concomitant]
     Active Substance: CARVEDILOL
     Route: 065
  6. ESZOPICLONE [Concomitant]
     Active Substance: ESZOPICLONE
     Route: 065
  7. EZETIMIBE [Concomitant]
     Active Substance: EZETIMIBE
     Route: 065
  8. FEBUXOSTAT [Concomitant]
     Active Substance: FEBUXOSTAT
     Route: 065
  9. INTELENCE [Concomitant]
     Active Substance: ETRAVIRINE
     Route: 065
  10. LOSARTAN POTASSIUM [Concomitant]
     Active Substance: LOSARTAN POTASSIUM
     Route: 065
  11. PARICALCITOL [Concomitant]
     Active Substance: PARICALCITOL
     Route: 065
  12. PREZISTA [Concomitant]
     Active Substance: DARUNAVIR ETHANOLATE
     Route: 065

REACTIONS (1)
  - Hiccups [Recovering/Resolving]

NARRATIVE: CASE EVENT DATE: 20230413
